FAERS Safety Report 4564942-9 (Version None)
Quarter: 2005Q1

REPORT INFORMATION
  Report Type: 
  Country: None (occurrence: None)
  Receive Date: 20050131
  Receipt Date: 20050119
  Transmission Date: 20050727
  Serious: Yes (Other)
  Sender: FDA-Public Use
  Company Number: US-JNJFOC-20041101237

PATIENT
  Sex: Female

DRUGS (4)
  1. REMICADE [Suspect]
     Route: 042
  2. GENTAMICIN [Suspect]
     Indication: BLADDER OPERATION
  3. METHOTREXATE [Concomitant]
  4. SYNTHROID [Concomitant]

REACTIONS (8)
  - ACTIVATED PARTIAL THROMBOPLASTIN TIME PROLONGED [None]
  - ASTHMA [None]
  - DEAFNESS NEUROSENSORY [None]
  - ECZEMA [None]
  - IMMUNOGLOBULINS INCREASED [None]
  - OTOTOXICITY [None]
  - PROTEIN TOTAL INCREASED [None]
  - TREATMENT NONCOMPLIANCE [None]
